FAERS Safety Report 10097773 (Version 2)
Quarter: 2014Q2

REPORT INFORMATION
  Report Type: Spontaneous
  Country: US (occurrence: US)
  Receive Date: 20140423
  Receipt Date: 20140423
  Transmission Date: 20141212
  Serious: No
  Sender: FDA-Public Use
  Company Number: US-BIOGENIDEC-2014BI035095

PATIENT
  Age: 61 Year
  Sex: Female

DRUGS (14)
  1. TECFIDERA [Suspect]
     Indication: MULTIPLE SCLEROSIS
     Route: 048
     Dates: start: 201402, end: 201403
  2. ATENOLOL [Concomitant]
     Dates: start: 20140217
  3. OXYCODONE ACETAMINOPHEN [Concomitant]
     Route: 048
     Dates: start: 20140128
  4. LORAZEPAM [Concomitant]
     Dates: start: 20131216
  5. DETROL LA [Concomitant]
     Route: 048
     Dates: start: 20131028
  6. WELLBUTRIN SR [Concomitant]
     Route: 048
     Dates: start: 20130827
  7. NEXIUM [Concomitant]
     Route: 048
     Dates: start: 20130805
  8. COUMADIN [Concomitant]
     Route: 048
     Dates: start: 20130729
  9. DIGOXIN [Concomitant]
     Dates: start: 20130610
  10. CELEBREX [Concomitant]
     Route: 048
     Dates: start: 20130408
  11. LASIX [Concomitant]
     Route: 048
     Dates: start: 20131218
  12. KLOR CON [Concomitant]
     Dates: start: 20120913
  13. OXYBUTYNIN CHLORIDE [Concomitant]
     Route: 048
     Dates: start: 20100729
  14. VIT D2 [Concomitant]
     Route: 048

REACTIONS (6)
  - Drug intolerance [Unknown]
  - Decubitus ulcer [Unknown]
  - Pain in extremity [Unknown]
  - Hypoaesthesia [Unknown]
  - Dizziness [Not Recovered/Not Resolved]
  - Skin burning sensation [Recovered/Resolved]
